FAERS Safety Report 6672144-5 (Version None)
Quarter: 2010Q2

REPORT INFORMATION
  Report Type: 
  Country: None (occurrence: None)
  Receive Date: 20100407
  Receipt Date: 20100407
  Transmission Date: 20101027
  Serious: No
  Sender: FDA-Public Use
  Company Number: None

PATIENT
  Sex: Female
  Weight: 64.4108 kg

DRUGS (1)
  1. BONIVA [Suspect]
     Indication: OSTEOPOROSIS PROPHYLAXIS
     Dosage: ONE TABLET 150 MGM MONTHLY PO
     Route: 048
     Dates: start: 19950706, end: 20100404

REACTIONS (4)
  - BONE DISORDER [None]
  - FOOT FRACTURE [None]
  - PRODUCT QUALITY ISSUE [None]
  - STRESS FRACTURE [None]
